FAERS Safety Report 4525784-3 (Version None)
Quarter: 2004Q4

REPORT INFORMATION
  Report Type: 
  Country: None (occurrence: None)
  Receive Date: 20041116
  Receipt Date: 20040920
  Transmission Date: 20050328
  Serious: Yes (Hospitalization)
  Sender: FDA-Public Use
  Company Number: S04-USA-06236-01

PATIENT
  Age: 72 Year
  Sex: Female

DRUGS (14)
  1. NAMENDA [Suspect]
     Indication: DEMENTIA ALZHEIMER'S TYPE
     Dosage: 5 MG QD PO
     Route: 048
     Dates: start: 20040912, end: 20040901
  2. ARICEPT [Concomitant]
  3. GABITRIL [Concomitant]
  4. RISPERDAL [Concomitant]
  5. LOVENOX [Concomitant]
  6. PREDNISONE [Concomitant]
  7. AMBIEN [Concomitant]
  8. LISINOPRIL [Concomitant]
  9. PLAVIX [Concomitant]
  10. ADVAIR DISKUS 100/50 [Concomitant]
  11. ALBUTEROL [Concomitant]
  12. CALCIUM CARBONATE [Concomitant]
  13. PHOSPHORUS SULFATE [Concomitant]
  14. MULTI-VITAMIN [Concomitant]

REACTIONS (1)
  - CONVULSION [None]
